FAERS Safety Report 7396542-X (Version None)
Quarter: 2011Q1

REPORT INFORMATION
  Report Type: 
  Country: None (occurrence: None)
  Receive Date: 20110325
  Receipt Date: 20110211
  Transmission Date: 20110831
  Serious: Yes (Other)
  Sender: FDA-Public Use
  Company Number: 2010BH000145

PATIENT
  Age: 32 Year
  Sex: Male
  Weight: 134.7183 kg

DRUGS (91)
  1. INDOMETHACIN [Suspect]
     Indication: PRODUCT USED FOR UNKNOWN INDICATION
     Dosage: 50 MG;3X A DAY
     Dates: start: 20080101, end: 20080128
  2. ZOSYN [Concomitant]
  3. ZOFRAN [Concomitant]
  4. HEPARIN SODIUM INJECTION [Suspect]
     Dosage: 5000 UNITS;SC ; 5000 UNITS;3X A DAY;SC ; 5000 UNITS;SC ; 5000 UNITS;SC
     Route: 058
     Dates: start: 20080127, end: 20080220
  5. HEPARIN SODIUM INJECTION [Suspect]
     Dosage: 5000 UNITS;SC ; 5000 UNITS;3X A DAY;SC ; 5000 UNITS;SC ; 5000 UNITS;SC
     Route: 058
     Dates: start: 20080217
  6. HEPARIN SODIUM INJECTION [Suspect]
     Dosage: 5000 UNITS;SC ; 5000 UNITS;3X A DAY;SC ; 5000 UNITS;SC ; 5000 UNITS;SC
     Route: 058
     Dates: start: 20080207, end: 20080207
  7. HEPARIN SODIUM INJECTION [Suspect]
     Dosage: 5000 UNITS;SC ; 5000 UNITS;3X A DAY;SC ; 5000 UNITS;SC ; 5000 UNITS;SC
     Route: 058
     Dates: start: 20080211, end: 20080211
  8. HEPARIN SODIUM INJECTION [Suspect]
     Dosage: 5000 UNITS;SC ; 5000 UNITS;3X A DAY;SC ; 5000 UNITS;SC ; 5000 UNITS;SC
     Route: 058
     Dates: start: 20080208, end: 20080208
  9. REGLAN [Concomitant]
  10. IPRATROPIUM BROMIDE [Concomitant]
  11. PHENERGAN HCL [Concomitant]
  12. DURAGESIC [Concomitant]
  13. DILAUDID [Concomitant]
  14. HEPARIN SODIUM 5,000 UNITS IN DEXTROSE 5% [Suspect]
     Indication: THROMBOSIS PROPHYLAXIS
     Dosage: 25000 UNITS;IV
     Route: 042
     Dates: start: 20080127, end: 20080128
  15. HEPARIN SODIUM 1,000 UNITS AND SODIUM CHLORIDE 0.9% [Suspect]
     Indication: PRODUCT USED FOR UNKNOWN INDICATION
  16. LEXAPRO [Concomitant]
  17. AMBIEN [Concomitant]
  18. FERRLECIT [Concomitant]
  19. DARVOCET-N 50 [Concomitant]
  20. PREDNISONE [Concomitant]
  21. FENTANYL [Concomitant]
  22. XANAX [Concomitant]
  23. NORCO [Concomitant]
  24. LASIX [Concomitant]
  25. COREG [Concomitant]
  26. HEPARIN SODIUM INJECTION (100 U/ML) [Suspect]
     Indication: INTRAVENOUS CATHETER MANAGEMENT
     Dosage: ONCE ; IV
     Route: 042
     Dates: start: 20080122, end: 20080129
  27. HEPARIN SODIUM INJECTION (100 U/ML) [Suspect]
     Indication: INTRAVENOUS CATHETER MANAGEMENT
     Dosage: ONCE ; IV
     Route: 042
     Dates: start: 20080122, end: 20080122
  28. PREDNISONE [Suspect]
     Indication: ASTHMA
     Dosage: EVERY DAY
     Dates: start: 20080101
  29. ADVAIR DISKUS 100/50 [Concomitant]
  30. PROTONIX [Concomitant]
  31. DIPHENHYDRAMINE [Concomitant]
  32. POTASSIUM CHLORIDE [Concomitant]
  33. AMITRIPTYLINE [Concomitant]
  34. VANCOMYCIN [Concomitant]
  35. CELEXA [Concomitant]
  36. PULMICORT [Concomitant]
  37. PRILOSEC [Concomitant]
  38. BENTYL [Concomitant]
  39. ALBUTEROL [Concomitant]
  40. PREDNISONE [Concomitant]
  41. TIZANIDINE [Concomitant]
  42. DOCUSATE SODIUM [Concomitant]
  43. ACETAMINOPHEN [Concomitant]
  44. INSULIN [Concomitant]
  45. DUONEB [Concomitant]
  46. CYCLOBENZAPRINE [Concomitant]
  47. HEPARIN SODIUM INJECTION [Suspect]
     Indication: HAEMODIALYSIS
     Dosage: SEE IMAGE
     Route: 042
     Dates: start: 20080128, end: 20080128
  48. HEPARIN SODIUM INJECTION [Suspect]
     Indication: THROMBOSIS PROPHYLAXIS
     Dosage: SEE IMAGE
     Route: 042
     Dates: start: 20080128, end: 20080128
  49. HEPARIN SODIUM INJECTION [Suspect]
     Indication: CATHETERISATION CARDIAC
     Dosage: SEE IMAGE
     Route: 042
     Dates: start: 20080128, end: 20080128
  50. HEPARIN SODIUM INJECTION [Suspect]
     Indication: INTRAVENOUS CATHETER MANAGEMENT
     Dosage: SEE IMAGE
     Route: 042
     Dates: start: 20080128, end: 20080128
  51. HEPARIN SODIUM INJECTION [Suspect]
     Indication: HAEMODIALYSIS
     Dosage: SEE IMAGE
     Route: 042
     Dates: start: 20080121, end: 20080121
  52. HEPARIN SODIUM INJECTION [Suspect]
     Indication: THROMBOSIS PROPHYLAXIS
     Dosage: SEE IMAGE
     Route: 042
     Dates: start: 20080121, end: 20080121
  53. HEPARIN SODIUM INJECTION [Suspect]
     Indication: CATHETERISATION CARDIAC
     Dosage: SEE IMAGE
     Route: 042
     Dates: start: 20080121, end: 20080121
  54. HEPARIN SODIUM INJECTION [Suspect]
     Indication: INTRAVENOUS CATHETER MANAGEMENT
     Dosage: SEE IMAGE
     Route: 042
     Dates: start: 20080121, end: 20080121
  55. HEPARIN SODIUM INJECTION [Suspect]
     Indication: HAEMODIALYSIS
     Dosage: SEE IMAGE
     Route: 042
     Dates: start: 20080127, end: 20080127
  56. HEPARIN SODIUM INJECTION [Suspect]
     Indication: THROMBOSIS PROPHYLAXIS
     Dosage: SEE IMAGE
     Route: 042
     Dates: start: 20080127, end: 20080127
  57. HEPARIN SODIUM INJECTION [Suspect]
     Indication: CATHETERISATION CARDIAC
     Dosage: SEE IMAGE
     Route: 042
     Dates: start: 20080127, end: 20080127
  58. HEPARIN SODIUM INJECTION [Suspect]
     Indication: INTRAVENOUS CATHETER MANAGEMENT
     Dosage: SEE IMAGE
     Route: 042
     Dates: start: 20080127, end: 20080127
  59. HEPARIN SODIUM INJECTION [Suspect]
     Indication: HAEMODIALYSIS
     Dosage: SEE IMAGE
     Route: 042
     Dates: start: 20080113
  60. HEPARIN SODIUM INJECTION [Suspect]
     Indication: THROMBOSIS PROPHYLAXIS
     Dosage: SEE IMAGE
     Route: 042
     Dates: start: 20080113
  61. HEPARIN SODIUM INJECTION [Suspect]
     Indication: CATHETERISATION CARDIAC
     Dosage: SEE IMAGE
     Route: 042
     Dates: start: 20080113
  62. HEPARIN SODIUM INJECTION [Suspect]
     Indication: INTRAVENOUS CATHETER MANAGEMENT
     Dosage: SEE IMAGE
     Route: 042
     Dates: start: 20080113
  63. HEPARIN SODIUM INJECTION [Suspect]
     Indication: HAEMODIALYSIS
     Dosage: SEE IMAGE
     Route: 042
     Dates: start: 20080114, end: 20080114
  64. HEPARIN SODIUM INJECTION [Suspect]
     Indication: THROMBOSIS PROPHYLAXIS
     Dosage: SEE IMAGE
     Route: 042
     Dates: start: 20080114, end: 20080114
  65. HEPARIN SODIUM INJECTION [Suspect]
     Indication: CATHETERISATION CARDIAC
     Dosage: SEE IMAGE
     Route: 042
     Dates: start: 20080114, end: 20080114
  66. HEPARIN SODIUM INJECTION [Suspect]
     Indication: INTRAVENOUS CATHETER MANAGEMENT
     Dosage: SEE IMAGE
     Route: 042
     Dates: start: 20080114, end: 20080114
  67. HEPARIN SODIUM INJECTION [Suspect]
     Indication: HAEMODIALYSIS
     Dosage: SEE IMAGE
     Route: 042
     Dates: start: 20080206, end: 20080206
  68. HEPARIN SODIUM INJECTION [Suspect]
     Indication: THROMBOSIS PROPHYLAXIS
     Dosage: SEE IMAGE
     Route: 042
     Dates: start: 20080206, end: 20080206
  69. HEPARIN SODIUM INJECTION [Suspect]
     Indication: CATHETERISATION CARDIAC
     Dosage: SEE IMAGE
     Route: 042
     Dates: start: 20080206, end: 20080206
  70. HEPARIN SODIUM INJECTION [Suspect]
     Indication: INTRAVENOUS CATHETER MANAGEMENT
     Dosage: SEE IMAGE
     Route: 042
     Dates: start: 20080206, end: 20080206
  71. HEPARIN SODIUM INJECTION [Suspect]
     Indication: HAEMODIALYSIS
     Dosage: SEE IMAGE
     Route: 042
     Dates: start: 20080207, end: 20080207
  72. HEPARIN SODIUM INJECTION [Suspect]
     Indication: THROMBOSIS PROPHYLAXIS
     Dosage: SEE IMAGE
     Route: 042
     Dates: start: 20080207, end: 20080207
  73. HEPARIN SODIUM INJECTION [Suspect]
     Indication: CATHETERISATION CARDIAC
     Dosage: SEE IMAGE
     Route: 042
     Dates: start: 20080207, end: 20080207
  74. HEPARIN SODIUM INJECTION [Suspect]
     Indication: INTRAVENOUS CATHETER MANAGEMENT
     Dosage: SEE IMAGE
     Route: 042
     Dates: start: 20080207, end: 20080207
  75. HEPARIN SODIUM INJECTION [Suspect]
     Indication: HAEMODIALYSIS
     Dosage: SEE IMAGE
     Route: 042
     Dates: start: 20080128, end: 20080128
  76. HEPARIN SODIUM INJECTION [Suspect]
     Indication: THROMBOSIS PROPHYLAXIS
     Dosage: SEE IMAGE
     Route: 042
     Dates: start: 20080128, end: 20080128
  77. HEPARIN SODIUM INJECTION [Suspect]
     Indication: CATHETERISATION CARDIAC
     Dosage: SEE IMAGE
     Route: 042
     Dates: start: 20080128, end: 20080128
  78. HEPARIN SODIUM INJECTION [Suspect]
     Indication: INTRAVENOUS CATHETER MANAGEMENT
     Dosage: SEE IMAGE
     Route: 042
     Dates: start: 20080128, end: 20080128
  79. HEPARIN SODIUM INJECTION [Suspect]
     Indication: HAEMODIALYSIS
     Dosage: SEE IMAGE
     Route: 042
     Dates: start: 20080127, end: 20080127
  80. HEPARIN SODIUM INJECTION [Suspect]
     Indication: THROMBOSIS PROPHYLAXIS
     Dosage: SEE IMAGE
     Route: 042
     Dates: start: 20080127, end: 20080127
  81. HEPARIN SODIUM INJECTION [Suspect]
     Indication: CATHETERISATION CARDIAC
     Dosage: SEE IMAGE
     Route: 042
     Dates: start: 20080127, end: 20080127
  82. HEPARIN SODIUM INJECTION [Suspect]
     Indication: INTRAVENOUS CATHETER MANAGEMENT
     Dosage: SEE IMAGE
     Route: 042
     Dates: start: 20080127, end: 20080127
  83. HEPARIN SODIUM INJECTION [Suspect]
     Indication: HAEMODIALYSIS
     Dosage: SEE IMAGE
     Route: 042
     Dates: start: 20080115, end: 20080115
  84. HEPARIN SODIUM INJECTION [Suspect]
     Indication: THROMBOSIS PROPHYLAXIS
     Dosage: SEE IMAGE
     Route: 042
     Dates: start: 20080115, end: 20080115
  85. HEPARIN SODIUM INJECTION [Suspect]
     Indication: CATHETERISATION CARDIAC
     Dosage: SEE IMAGE
     Route: 042
     Dates: start: 20080115, end: 20080115
  86. HEPARIN SODIUM INJECTION [Suspect]
     Indication: INTRAVENOUS CATHETER MANAGEMENT
     Dosage: SEE IMAGE
     Route: 042
     Dates: start: 20080115, end: 20080115
  87. HEPARIN SODIUM INJECTION [Suspect]
     Indication: HAEMODIALYSIS
     Dosage: SEE IMAGE
     Route: 042
     Dates: start: 20080128, end: 20080128
  88. HEPARIN SODIUM INJECTION [Suspect]
     Indication: THROMBOSIS PROPHYLAXIS
     Dosage: SEE IMAGE
     Route: 042
     Dates: start: 20080128, end: 20080128
  89. HEPARIN SODIUM INJECTION [Suspect]
     Indication: CATHETERISATION CARDIAC
     Dosage: SEE IMAGE
     Route: 042
     Dates: start: 20080128, end: 20080128
  90. HEPARIN SODIUM INJECTION [Suspect]
     Indication: INTRAVENOUS CATHETER MANAGEMENT
     Dosage: SEE IMAGE
     Route: 042
     Dates: start: 20080128, end: 20080128
  91. HYDROCODONE [Concomitant]

REACTIONS (64)
  - MYALGIA [None]
  - TRACHEAL STENOSIS [None]
  - GASTRIC ULCER [None]
  - HISTIOCYTOSIS HAEMATOPHAGIC [None]
  - NEURALGIA [None]
  - DISSEMINATED INTRAVASCULAR COAGULATION [None]
  - RESPIRATORY SYNCYTIAL VIRUS INFECTION [None]
  - MOUTH HAEMORRHAGE [None]
  - POST PROCEDURAL HAEMORRHAGE [None]
  - SYSTEMIC INFLAMMATORY RESPONSE SYNDROME [None]
  - LEUKOCYTOSIS [None]
  - HEPATIC FAILURE [None]
  - BLISTER [None]
  - INFUSION SITE HAEMORRHAGE [None]
  - HAEMODIALYSIS [None]
  - GASTROINTESTINAL HAEMORRHAGE [None]
  - SEPSIS [None]
  - ATRIAL FIBRILLATION [None]
  - COLITIS [None]
  - IMMUNOSUPPRESSION [None]
  - PULMONARY OEDEMA [None]
  - VOMITING [None]
  - CARDIAC FAILURE CONGESTIVE [None]
  - INCONTINENCE [None]
  - HYPOTENSION [None]
  - HYPOAESTHESIA [None]
  - PANCYTOPENIA [None]
  - CHEST PAIN [None]
  - GASTROOESOPHAGEAL REFLUX DISEASE [None]
  - EAR DISORDER [None]
  - CHILLS [None]
  - STILL'S DISEASE ADULT ONSET [None]
  - RASH PRURITIC [None]
  - MALNUTRITION [None]
  - PANCREATIC DISORDER [None]
  - CARDIAC ENZYMES INCREASED [None]
  - PERICARDITIS [None]
  - TACHYCARDIA [None]
  - ORAL CANDIDIASIS [None]
  - PERICARDIAL EFFUSION [None]
  - FOLLICULITIS [None]
  - FUNGAL INFECTION [None]
  - MALAISE [None]
  - FACIAL PAIN [None]
  - URINARY RETENTION [None]
  - RESPIRATORY FAILURE [None]
  - EPISTAXIS [None]
  - CATHETER SITE HAEMORRHAGE [None]
  - INSOMNIA [None]
  - ASTHENIA [None]
  - NAUSEA [None]
  - SKIN DISORDER [None]
  - THROMBOCYTOPENIA [None]
  - INTESTINAL FUNCTIONAL DISORDER [None]
  - METABOLIC ENCEPHALOPATHY [None]
  - HYPOKALAEMIA [None]
  - HAEMORRHAGIC ANAEMIA [None]
  - SPLENOMEGALY [None]
  - HYPOGAMMAGLOBULINAEMIA [None]
  - PRODUCTIVE COUGH [None]
  - OSTEONECROSIS [None]
  - ANXIETY [None]
  - RENAL FAILURE ACUTE [None]
  - MULTI-ORGAN FAILURE [None]
